FAERS Safety Report 18792117 (Version 1)
Quarter: 2021Q1

REPORT INFORMATION
  Report Type: Spontaneous
  Country: JP (occurrence: JP)
  Receive Date: 20210126
  Receipt Date: 20210126
  Transmission Date: 20210419
  Serious: Yes (Death, Other)
  Sender: FDA-Public Use
  Company Number: JP-ROCHE-2722408

PATIENT
  Age: 8 Decade
  Sex: Female

DRUGS (3)
  1. ETOPOSIDE. [Suspect]
     Active Substance: ETOPOSIDE
     Indication: SMALL CELL LUNG CANCER
     Route: 041
     Dates: start: 20200805, end: 20201007
  2. TECENTRIQ [Suspect]
     Active Substance: ATEZOLIZUMAB
     Indication: SMALL CELL LUNG CANCER
     Route: 041
     Dates: start: 20200826, end: 20201007
  3. CARBOPLATIN. [Suspect]
     Active Substance: CARBOPLATIN
     Indication: SMALL CELL LUNG CANCER
     Dosage: DOSAGE: 5 WITH UNKNOWN UNIT
     Route: 041
     Dates: start: 20200805, end: 20201007

REACTIONS (3)
  - Cognitive disorder [Unknown]
  - Hippocampal atrophy [Unknown]
  - Death [Fatal]

NARRATIVE: CASE EVENT DATE: 202010
